FAERS Safety Report 21254510 (Version 6)
Quarter: 2024Q2

REPORT INFORMATION
  Report Type: Report from Study
  Country: US (occurrence: US)
  Receive Date: 20220825
  Receipt Date: 20240612
  Transmission Date: 20240716
  Serious: Yes (Hospitalization, Other)
  Sender: FDA-Public Use
  Company Number: US-ABBVIE-22K-163-4515917-00

PATIENT
  Age: 61 Year
  Sex: Female
  Weight: 58.059 kg

DRUGS (4)
  1. RINVOQ [Suspect]
     Active Substance: UPADACITINIB
     Indication: Rheumatoid arthritis
     Dosage: LAST ADMIN DATE: JUL 2022
     Route: 048
     Dates: start: 20220704
  2. RINVOQ [Suspect]
     Active Substance: UPADACITINIB
     Indication: Rheumatoid arthritis
     Dosage: LAST ADMIN DATE: 2022
     Route: 048
     Dates: start: 20220711
  3. RINVOQ [Suspect]
     Active Substance: UPADACITINIB
     Indication: Rheumatoid arthritis
     Route: 048
     Dates: end: 20221226
  4. HYDROXYCHLOROQUINE [Concomitant]
     Active Substance: HYDROXYCHLOROQUINE
     Indication: Rheumatoid arthritis

REACTIONS (7)
  - Obstructive pancreatitis [Unknown]
  - Cholecystectomy [Recovered/Resolved]
  - Rheumatoid arthritis [Not Recovered/Not Resolved]
  - Musculoskeletal disorder [Unknown]
  - Pain in extremity [Unknown]
  - Pancreatitis relapsing [Unknown]
  - Nasopharyngitis [Unknown]

NARRATIVE: CASE EVENT DATE: 20220801
